FAERS Safety Report 20167007 (Version 5)
Quarter: 2022Q1

REPORT INFORMATION
  Report Type: Report from Study
  Country: FR (occurrence: FR)
  Receive Date: 20211209
  Receipt Date: 20220330
  Transmission Date: 20220424
  Serious: Yes (Hospitalization)
  Sender: FDA-Public Use
  Company Number: FR-SERVIER-S21013325

PATIENT

DRUGS (10)
  1. PEGASPARGASE [Suspect]
     Active Substance: PEGASPARGASE
     Indication: Acute lymphocytic leukaemia
     Dosage: 787.5 IU ON D4
     Route: 042
     Dates: start: 20210706, end: 20210706
  2. PEGASPARGASE [Suspect]
     Active Substance: PEGASPARGASE
     Dosage: 787.5 IU ON D4
     Route: 042
     Dates: start: 20211112, end: 20211112
  3. DEXAMETHASONE [Suspect]
     Active Substance: DEXAMETHASONE
     Indication: Acute lymphocytic leukaemia
     Dosage: 6 MG, D1 TO D14
     Route: 048
     Dates: start: 20211109, end: 20211123
  4. DOXORUBICIN HYDROCHLORIDE [Suspect]
     Active Substance: DOXORUBICIN HYDROCHLORIDE
     Indication: Acute lymphocytic leukaemia
     Dosage: 16 MG, D1, D8, D15
     Route: 042
     Dates: start: 20211109, end: 20211123
  5. VINCRISTINE SULFATE [Suspect]
     Active Substance: VINCRISTINE SULFATE
     Indication: Acute lymphocytic leukaemia
     Dosage: 0.9 MG, D1, D8, D15
     Route: 042
     Dates: start: 20211109, end: 20211123
  6. METHOTREXATE SODIUM [Suspect]
     Active Substance: METHOTREXATE SODIUM
     Indication: Acute lymphocytic leukaemia
     Dosage: 12 MG, D4 AND D31
     Route: 037
     Dates: start: 20211112
  7. CYCLOPHOSPHAMIDE [Suspect]
     Active Substance: CYCLOPHOSPHAMIDE
     Indication: Acute lymphocytic leukaemia
     Dosage: 640 MG, ON D 29
     Route: 042
     Dates: start: 20211207
  8. THIOGUANINE [Suspect]
     Active Substance: THIOGUANINE
     Indication: Acute lymphocytic leukaemia
     Dosage: 40 MG, ON D29 TO 42
     Route: 048
     Dates: start: 20211207, end: 20211220
  9. CYTARABINE [Suspect]
     Active Substance: CYTARABINE
     Indication: Acute lymphocytic leukaemia
     Dosage: 47 MG, ON D31 TO 34 AND D38 TO 41
     Route: 042
     Dates: start: 20211209, end: 20211219
  10. TN UNSPECIFIED [Concomitant]
     Indication: Hypertension
     Dosage: 1.5 MG
     Route: 048

REACTIONS (2)
  - Hypokalaemia [Recovered/Resolved]
  - Venoocclusive disease [Recovered/Resolved]

NARRATIVE: CASE EVENT DATE: 20211123
